FAERS Safety Report 24663505 (Version 2)
Quarter: 2024Q4

REPORT INFORMATION
  Report Type: Spontaneous
  Country: JP (occurrence: JP)
  Receive Date: 20241126
  Receipt Date: 20241211
  Transmission Date: 20250114
  Serious: Yes (Other)
  Sender: GLAXOSMITHKLINE
  Company Number: JP-TAKEDA-2024TJP005603

PATIENT

DRUGS (2)
  1. ZEJULA [Suspect]
     Active Substance: NIRAPARIB
     Indication: Ovarian cancer recurrent
     Dosage: UNK
     Route: 048
     Dates: start: 202402
  2. ZEJULA [Suspect]
     Active Substance: NIRAPARIB
     Dosage: 100 MG, QD
     Route: 048
     Dates: start: 202403, end: 202411

REACTIONS (3)
  - Ovarian cancer recurrent [Not Recovered/Not Resolved]
  - Thirst [Recovering/Resolving]
  - Stomatitis [Recovering/Resolving]
